FAERS Safety Report 10053243 (Version 4)
Quarter: 2014Q2

REPORT INFORMATION
  Report Type: Spontaneous
  Country: AU (occurrence: AU)
  Receive Date: 20140402
  Receipt Date: 20140606
  Transmission Date: 20141212
  Serious: Yes (Hospitalization)
  Sender: FDA-Public Use
  Company Number: AU-GLAXOSMITHKLINE-B0982104A

PATIENT
  Sex: Female

DRUGS (4)
  1. ASMOL [Suspect]
     Indication: ASTHMA
     Dosage: 2PUFF TWICE PER DAY
     Route: 055
     Dates: end: 20140325
  2. SERETIDE [Concomitant]
     Indication: ASTHMA
     Dosage: 2PUFF TWICE PER DAY
     Route: 055
  3. PREDMIX [Concomitant]
     Indication: ASTHMA
     Dates: start: 20140317
  4. CLAMOXYL [Concomitant]
     Dates: start: 20140318

REACTIONS (3)
  - Respiratory disorder [Recovered/Resolved]
  - Drug ineffective [Recovered/Resolved]
  - Product quality issue [Unknown]
